FAERS Safety Report 4586058-8 (Version None)
Quarter: 2005Q1

REPORT INFORMATION
  Report Type: 
  Country: None (occurrence: None)
  Receive Date: 20050125
  Receipt Date: 20041027
  Transmission Date: 20050727
  Serious: No
  Sender: FDA-Public Use
  Company Number: USA040978951

PATIENT
  Age: 83 Year
  Sex: Female
  Weight: 73 kg

DRUGS (9)
  1. FORTEO [Suspect]
     Indication: OSTEOPOROSIS
     Dosage: 20 UG DAY
     Dates: start: 20040505, end: 20040701
  2. SINEMET [Concomitant]
  3. NORTRIPTYLINE HCL [Concomitant]
  4. TRAZADONE (TRAZODONE) [Concomitant]
  5. PROVIGIL [Concomitant]
  6. CALCIUM GLUCONATE [Concomitant]
  7. VITAMIN D [Concomitant]
  8. PEPCID [Concomitant]
  9. SYNTHROID [Concomitant]

REACTIONS (1)
  - PARKINSON'S DISEASE [None]
